FAERS Safety Report 6463354-0 (Version None)
Quarter: 2009Q4

REPORT INFORMATION
  Report Type: 
  Country: None (occurrence: None)
  Receive Date: 20091130
  Receipt Date: 20090727
  Transmission Date: 20100525
  Serious: Yes (Other)
  Sender: FDA-Public Use
  Company Number: US-AMGEN-QUU357579

PATIENT
  Sex: Male

DRUGS (14)
  1. ENBREL [Suspect]
     Indication: DRUG USE FOR UNKNOWN INDICATION
  2. COZAAR [Concomitant]
  3. PREVACID [Concomitant]
  4. METOPROLOL [Concomitant]
  5. BENADRYL [Concomitant]
  6. MINOXIDIL [Concomitant]
  7. CREON [Concomitant]
  8. FENTANYL-100 [Concomitant]
  9. PERCOCET [Concomitant]
  10. ZOFRAN [Concomitant]
  11. LOMOTIL [Concomitant]
  12. ELIDEL [Concomitant]
  13. CLEOCIN [Concomitant]
     Route: 061
  14. TRAMADOL HCL [Concomitant]

REACTIONS (1)
  - PANCREATIC CARCINOMA [None]
